FAERS Safety Report 21166921 (Version 1)
Quarter: 2022Q3

REPORT INFORMATION
  Report Type: Spontaneous
  Country: US (occurrence: US)
  Receive Date: 20220803
  Receipt Date: 20220803
  Transmission Date: 20221027
  Serious: No
  Sender: FDA-Public Use
  Company Number: US-SAREPTA THERAPEUTICS INC.-SRP2022-002225

PATIENT
  Age: 31 Year
  Sex: Male

DRUGS (7)
  1. AMONDYS 45 [Suspect]
     Active Substance: CASIMERSEN
     Indication: Duchenne muscular dystrophy
     Dosage: 2300 MILLIGRAM, WEEKLY
     Route: 042
     Dates: start: 20220429, end: 20220429
  2. AMONDYS 45 [Suspect]
     Active Substance: CASIMERSEN
     Dosage: 2300 MILLIGRAM, WEEKLY
     Route: 042
     Dates: start: 20220524
  3. ABILIFY [Concomitant]
     Active Substance: ARIPIPRAZOLE
     Indication: Product used for unknown indication
     Dosage: UNK
     Dates: start: 202205
  4. CIPRO [Concomitant]
     Active Substance: CIPROFLOXACIN HYDROCHLORIDE
     Indication: Bacterial infection
     Dosage: 500 MILLIGRAM, BID, EVERY MORNING AND EVENING FOR 14 DAYS
  5. CIPRO [Concomitant]
     Active Substance: CIPROFLOXACIN HYDROCHLORIDE
     Indication: Gastric infection
  6. FLAGYL [Concomitant]
     Active Substance: METRONIDAZOLE\METRONIDAZOLE HYDROCHLORIDE
     Indication: Bacterial infection
     Dosage: UNK, TID FOR 14 DAYS
  7. FLAGYL [Concomitant]
     Active Substance: METRONIDAZOLE\METRONIDAZOLE HYDROCHLORIDE
     Indication: Gastric infection

REACTIONS (6)
  - Abdominal pain upper [Not Recovered/Not Resolved]
  - Migraine [Unknown]
  - Nausea [Recovered/Resolved]
  - COVID-19 [Recovered/Resolved]
  - Exposure to SARS-CoV-2 [Unknown]
  - Product dose omission issue [Unknown]

NARRATIVE: CASE EVENT DATE: 20220501
